FAERS Safety Report 10552421 (Version 1)
Quarter: 2014Q4

REPORT INFORMATION
  Report Type: Spontaneous
  Country: CO (occurrence: CO)
  Receive Date: 20141029
  Receipt Date: 20141029
  Transmission Date: 20150529
  Serious: Yes (Other)
  Sender: FDA-Public Use
  Company Number: CO-BAXTER-2014BAX063070

PATIENT
  Sex: Female

DRUGS (6)
  1. CIPROFLOXACIN. [Suspect]
     Active Substance: CIPROFLOXACIN
     Indication: URINARY TRACT INFECTION
     Route: 042
     Dates: start: 20141008, end: 20141015
  2. OMEPRAZOLE. [Concomitant]
     Active Substance: OMEPRAZOLE
     Indication: PRODUCT USED FOR UNKNOWN INDICATION
     Route: 065
  3. HYDROCORTISONE. [Suspect]
     Active Substance: HYDROCORTISONE
     Indication: PAIN MANAGEMENT
     Route: 042
     Dates: start: 20141008, end: 20141015
  4. NITROGLICERINA EN DEXTROSA AL 5% 50 MG/250 ML. (200 MCG/ML) [Suspect]
     Active Substance: NITROGLYCERIN
     Indication: BLOOD PRESSURE ABNORMAL
     Route: 042
     Dates: start: 20141008, end: 20141015
  5. HYDROCORTISONE. [Suspect]
     Active Substance: HYDROCORTISONE
     Indication: PYREXIA
  6. RANITIDINE [Suspect]
     Active Substance: RANITIDINE\RANITIDINE HYDROCHLORIDE
     Indication: PROPHYLAXIS AGAINST GASTROINTESTINAL ULCER
     Route: 042
     Dates: start: 20141008, end: 20141015

REACTIONS (7)
  - Metabolic alkalosis [Unknown]
  - Tachyphylaxis [Unknown]
  - Phlebitis [Unknown]
  - Traumatic lung injury [Unknown]
  - Hepatic necrosis [Unknown]
  - Bradycardia [Unknown]
  - Vessel puncture site erythema [Unknown]

NARRATIVE: CASE EVENT DATE: 20141014
